FAERS Safety Report 10267803 (Version 1)
Quarter: 2014Q2

REPORT INFORMATION
  Report Type: Spontaneous
  Country: US (occurrence: US)
  Receive Date: 20140630
  Receipt Date: 20140630
  Transmission Date: 20141212
  Serious: No
  Sender: FDA-Public Use
  Company Number: US-GLAXOSMITHKLINE-A1025837A

PATIENT
  Age: 72 Year
  Sex: Male

DRUGS (3)
  1. ZANTAC [Suspect]
     Route: 065
  2. BIOTENE MOISTURIZING MOUTH SPRAY [Suspect]
     Route: 048
  3. PROZAC [Suspect]
     Route: 048

REACTIONS (2)
  - Dyspepsia [Not Recovered/Not Resolved]
  - Condition aggravated [Not Recovered/Not Resolved]
